FAERS Safety Report 9318076 (Version 1)
Quarter: 2013Q2

REPORT INFORMATION
  Report Type: Spontaneous
  Country: RU (occurrence: RU)
  Receive Date: 20130530
  Receipt Date: 20130530
  Transmission Date: 20140414
  Serious: Yes (Life-Threatening)
  Sender: FDA-Public Use
  Company Number: RU-ABBOTT-13X-251-1096136-00

PATIENT
  Age: 28 Year
  Sex: Male

DRUGS (2)
  1. DEPAKINE CHRONOSPHERE [Suspect]
     Indication: EPILEPSY
     Route: 048
     Dates: end: 20130129
  2. LAMOTRIGINE [Concomitant]
     Indication: PRODUCT USED FOR UNKNOWN INDICATION

REACTIONS (4)
  - Hypotonia [Recovering/Resolving]
  - Hallucination, visual [Recovering/Resolving]
  - Neurological examination abnormal [Recovering/Resolving]
  - Nausea [Recovering/Resolving]
